FAERS Safety Report 5917030-0 (Version None)
Quarter: 2008Q4

REPORT INFORMATION
  Report Type: 
  Country: None (occurrence: None)
  Receive Date: 20081009
  Receipt Date: 20081009
  Transmission Date: 20090506
  Serious: Yes (Hospitalization)
  Sender: FDA-Public Use
  Company Number: None

PATIENT
  Age: 69 Year
  Sex: Female
  Weight: 48.9885 kg

DRUGS (1)
  1. VENLAFAXINE HCL [Suspect]
     Indication: DEPRESSION
     Dosage: DAILY PO
     Route: 048
     Dates: start: 20040601, end: 20080601

REACTIONS (5)
  - DEPRESSION [None]
  - DYSPNOEA EXERTIONAL [None]
  - INAPPROPRIATE ANTIDIURETIC HORMONE SECRETION [None]
  - OEDEMA PERIPHERAL [None]
  - POLYDIPSIA [None]
